FAERS Safety Report 11941107 (Version 1)
Quarter: 2016Q1

REPORT INFORMATION
  Report Type: Spontaneous
  Country: NO (occurrence: NO)
  Receive Date: 20160122
  Receipt Date: 20160122
  Transmission Date: 20160526
  Serious: Yes (Hospitalization)
  Sender: FDA-Public Use
  Company Number: NO-ASTRAZENECA-2016SE05683

PATIENT
  Age: 710 Month
  Sex: Female

DRUGS (4)
  1. TRAMADOL. [Concomitant]
     Active Substance: TRAMADOL
  2. SEROQUEL [Suspect]
     Active Substance: QUETIAPINE FUMARATE
     Indication: PSYCHOTIC DISORDER
     Route: 048
     Dates: end: 201502
  3. SEROQUEL [Suspect]
     Active Substance: QUETIAPINE FUMARATE
     Indication: PSYCHOTIC DISORDER
     Route: 048
     Dates: start: 20121117
  4. SEROQUEL [Suspect]
     Active Substance: QUETIAPINE FUMARATE
     Indication: PSYCHOTIC DISORDER
     Route: 048

REACTIONS (8)
  - Personality disorder [Unknown]
  - Fatigue [Unknown]
  - Pain [Unknown]
  - Somnolence [Unknown]
  - Dizziness [Unknown]
  - Acute hepatic failure [Unknown]
  - Autoimmune hepatitis [Unknown]
  - Coma [Unknown]

NARRATIVE: CASE EVENT DATE: 201304
